FAERS Safety Report 7448075-X (Version None)
Quarter: 2011Q2

REPORT INFORMATION
  Report Type: 
  Country: None (occurrence: None)
  Receive Date: 20110429
  Receipt Date: 20110221
  Transmission Date: 20111010
  Serious: No
  Sender: FDA-Public Use
  Company Number: US-ASTRAZENECA-2008UW25425

PATIENT
  Age: 78 Year
  Sex: Female
  Weight: 60.8 kg

DRUGS (5)
  1. VALIUM [Concomitant]
     Indication: VESTIBULAR DISORDER
  2. NEXIUM [Suspect]
     Indication: GASTRITIS
     Route: 048
     Dates: start: 20030101
  3. VALIUM [Concomitant]
     Indication: DIZZINESS
  4. METAMUCIL-2 [Concomitant]
  5. NEXIUM [Suspect]
     Indication: GASTROOESOPHAGEAL REFLUX DISEASE
     Route: 048
     Dates: start: 20030101

REACTIONS (5)
  - THROMBOSIS [None]
  - DIZZINESS [None]
  - FALL [None]
  - BALANCE DISORDER [None]
  - NAUSEA [None]
